FAERS Safety Report 5126433-6 (Version None)
Quarter: 2006Q4

REPORT INFORMATION
  Report Type: 
  Country: None (occurrence: None)
  Receive Date: 20061010
  Receipt Date: 20060929
  Transmission Date: 20070319
  Serious: Yes (Death)
  Sender: FDA-Public Use
  Company Number: 2006BI007914

PATIENT
  Age: 88 Year
  Sex: Male

DRUGS (9)
  1. AVONEX [Suspect]
     Indication: MULTIPLE SCLEROSIS
     Dosage: IM
     Route: 030
  2. LISINOPRIL [Concomitant]
  3. LOPRESSOR [Concomitant]
  4. LASIX [Concomitant]
  5. TYLENOL [Concomitant]
  6. CELEXA [Concomitant]
  7. DARVOCET [Concomitant]
  8. DIGOXIN [Concomitant]
  9. ZANTAC [Concomitant]

REACTIONS (6)
  - ANAEMIA [None]
  - CATHETER RELATED INFECTION [None]
  - HAEMATURIA [None]
  - MULTIPLE SCLEROSIS [None]
  - NEUROGENIC BLADDER [None]
  - REFUSAL OF TREATMENT BY PATIENT [None]
